FAERS Safety Report 4474504-X (Version None)
Quarter: 2004Q4

REPORT INFORMATION
  Report Type: 
  Country: None (occurrence: None)
  Receive Date: 20041014
  Receipt Date: 20041007
  Transmission Date: 20050328
  Serious: Yes (Hospitalization)
  Sender: FDA-Public Use
  Company Number: US-MERCK-0410USA01201

PATIENT
  Sex: Female

DRUGS (8)
  1. [THERAPY UNSPECIFIED] [Concomitant]
     Route: 065
  2. VICODIN [Concomitant]
     Route: 065
  3. LEXAPRO [Concomitant]
     Route: 065
  4. GLUCOVANCE [Concomitant]
     Route: 065
  5. NIZATIDINE [Concomitant]
     Route: 065
  6. QUININE [Concomitant]
     Route: 065
  7. VIOXX [Suspect]
     Indication: ARTHRITIS
     Route: 048
     Dates: start: 19990101, end: 20041004
  8. AVANDIA [Concomitant]
     Route: 065

REACTIONS (4)
  - BLOOD GLUCOSE FLUCTUATION [None]
  - CHEST PAIN [None]
  - HEART VALVE INSUFFICIENCY [None]
  - NAUSEA [None]
